FAERS Safety Report 5939659-6 (Version None)
Quarter: 2008Q4

REPORT INFORMATION
  Report Type: 
  Country: None (occurrence: None)
  Receive Date: 20081030
  Receipt Date: 20081030
  Transmission Date: 20090506
  Serious: Yes (Hospitalization)
  Sender: FDA-Public Use
  Company Number: None

PATIENT
  Age: 85 Year
  Sex: Female
  Weight: 64.8644 kg

DRUGS (2)
  1. ATENOLOL AND CHLORTHALIDONE [Suspect]
     Indication: HYPERTENSION
     Dosage: 100-25 DAILY PO
     Route: 048
  2. LOSARTAN POTASSIUM [Suspect]
     Indication: HYPERTENSION
     Dosage: 25 MG DAILY PO
     Route: 048

REACTIONS (6)
  - ASTHENIA [None]
  - BRADYCARDIA [None]
  - FALL [None]
  - HYPOTENSION [None]
  - HYPOVOLAEMIA [None]
  - RENAL FAILURE ACUTE [None]
